FAERS Safety Report 8198089-X (Version None)
Quarter: 2012Q1

REPORT INFORMATION
  Report Type: 
  Country: None (occurrence: None)
  Receive Date: 20120309
  Receipt Date: 20120209
  Transmission Date: 20120608
  Serious: No
  Sender: FDA-Public Use
  Company Number: US-AMGEN-USASP2011014161

PATIENT
  Age: 60 Year
  Sex: Female
  Weight: 43.991 kg

DRUGS (12)
  1. POTASSIUM [Concomitant]
     Dosage: UNK
  2. SINGULAIR [Concomitant]
     Dosage: UNK
  3. AUGMENTIN '125' [Concomitant]
     Dosage: UNK
  4. TOPAMAX [Concomitant]
     Dosage: UNK
  5. FLONASE [Concomitant]
     Dosage: UNK
  6. HYDROCHLOROTHIAZIDE [Concomitant]
     Dosage: UNK
  7. DESYREL [Concomitant]
     Dosage: UNK
  8. ZOCOR [Concomitant]
     Dosage: UNK
  9. CALCIUM WITH VITAMIN D             /00944201/ [Concomitant]
     Dosage: UNK
  10. PROLIA [Suspect]
     Indication: OSTEOPOROSIS POSTMENOPAUSAL
     Dosage: 60 MG, Q6MO
     Dates: start: 20110310
  11. PROLIA [Suspect]
  12. WELLBUTRIN [Concomitant]
     Dosage: UNK

REACTIONS (6)
  - ANTIBIOTIC THERAPY [None]
  - DECREASED APPETITE [None]
  - BACK PAIN [None]
  - ABDOMINAL PAIN [None]
  - DYSURIA [None]
  - DRY SKIN [None]
